FAERS Safety Report 5521612-8 (Version None)
Quarter: 2007Q4

REPORT INFORMATION
  Report Type: 
  Country: None (occurrence: None)
  Receive Date: 20071115
  Receipt Date: 20071030
  Transmission Date: 20080405
  Serious: Yes (Hospitalization)
  Sender: FDA-Public Use
  Company Number: 230001L07ITA

PATIENT
  Age: 43 Year
  Sex: Female

DRUGS (2)
  1. REBIF [Suspect]
     Indication: MULTIPLE SCLEROSIS
     Dosage: 44 MCG, 1 IN 1 WEEKS, SUBCUTANEOUS ;  22 MCG, 2 IN 1 WEEKS, SUBCUTANEOUS
     Route: 058
     Dates: start: 20010301, end: 20050501
  2. REBIF [Suspect]
     Indication: MULTIPLE SCLEROSIS
     Dosage: 44 MCG, 1 IN 1 WEEKS, SUBCUTANEOUS ;  22 MCG, 2 IN 1 WEEKS, SUBCUTANEOUS
     Route: 058
     Dates: start: 20060501

REACTIONS (3)
  - ARTHRALGIA [None]
  - ASTHENIA [None]
  - HEPATITIS [None]
